FAERS Safety Report 17247238 (Version 1)
Quarter: 2020Q1

REPORT INFORMATION
  Report Type: Spontaneous
  Country: US (occurrence: US)
  Receive Date: 20200107
  Receipt Date: 20200107
  Transmission Date: 20200409
  Serious: Yes (Hospitalization)
  Sender: FDA-Public Use
  Company Number: None

PATIENT
  Age: 77 Year
  Sex: Male

DRUGS (11)
  1. OMEGA 3 [Concomitant]
     Active Substance: OMEGA-3 FATTY ACIDS
  2. CLONIDINE. [Concomitant]
     Active Substance: CLONIDINE
  3. ELIQUIS [Concomitant]
     Active Substance: APIXABAN
  4. AMLODIPINE [Concomitant]
     Active Substance: AMLODIPINE BESYLATE
  5. ASPIRIN. [Concomitant]
     Active Substance: ASPIRIN
  6. AVAPRO [Concomitant]
     Active Substance: IRBESARTAN
  7. REPATHA [Suspect]
     Active Substance: EVOLOCUMAB
     Indication: PROSTATE CANCER
     Dosage: ?          OTHER FREQUENCY:EVERY 2 WEEKS;?
     Route: 058
  8. FOLIC ACID. [Concomitant]
     Active Substance: FOLIC ACID
  9. FENOFIBRATE. [Concomitant]
     Active Substance: FENOFIBRATE
  10. TRAMADOL. [Concomitant]
     Active Substance: TRAMADOL
  11. ALFUZOSIN [Concomitant]
     Active Substance: ALFUZOSIN

REACTIONS (1)
  - Hospitalisation [None]
